FAERS Safety Report 8098370-9 (Version None)
Quarter: 2012Q1

REPORT INFORMATION
  Report Type: 
  Country: None (occurrence: None)
  Receive Date: 20120131
  Receipt Date: 20120123
  Transmission Date: 20120608
  Serious: No
  Sender: FDA-Public Use
  Company Number: GB-ABBOTT-12P-167-0889981-00

PATIENT
  Sex: Female

DRUGS (6)
  1. HUMIRA [Suspect]
     Indication: PSORIATIC ARTHROPATHY
  2. HUMIRA [Suspect]
     Indication: PSORIASIS
     Route: 058
     Dates: start: 20110825, end: 20120116
  3. SIMVASTATIN [Concomitant]
     Indication: BLOOD CHOLESTEROL
     Dosage: NOCTE
  4. FOLIC ACID [Concomitant]
     Indication: DRUG THERAPY
  5. METHOTREXATE [Concomitant]
     Indication: ARTHRITIS
  6. CODEINE PHOSPHATE [Concomitant]
     Indication: ARTHRITIS
     Dosage: NOCTE

REACTIONS (7)
  - INJECTION SITE WARMTH [None]
  - INJECTION SITE RASH [None]
  - INJECTION SITE SWELLING [None]
  - HAEMOPHILUS INFECTION [None]
  - INJECTION SITE ERYTHEMA [None]
  - RASH PRURITIC [None]
  - INJECTION SITE PRURITUS [None]
